FAERS Safety Report 9550031 (Version 4)
Quarter: 2014Q1

REPORT INFORMATION
  Report Type: Spontaneous
  Country: SE (occurrence: SE)
  Receive Date: 20130924
  Receipt Date: 20140227
  Transmission Date: 20141002
  Serious: Yes (Hospitalization)
  Sender: FDA-Public Use
  Company Number: SE-GLAXOSMITHKLINE-B0924812A

PATIENT
  Age: 51 Year
  Sex: Female

DRUGS (2)
  1. VOTRIENT [Suspect]
     Indication: SARCOMA
     Dosage: 800MG PER DAY
     Route: 048
     Dates: start: 20120921, end: 20121115
  2. CORTISONE [Concomitant]

REACTIONS (3)
  - Eye excision [Unknown]
  - Corneal perforation [Recovered/Resolved with Sequelae]
  - Post procedural infection [Unknown]
